FAERS Safety Report 26205049 (Version 1)
Quarter: 2025Q4

REPORT INFORMATION
  Report Type: Spontaneous
  Country: EU (occurrence: EU)
  Receive Date: 20251227
  Receipt Date: 20251227
  Transmission Date: 20260117
  Serious: Yes (Other)
  Sender: AMGEN
  Company Number: EU-AMGEN-FINSP2025250760

PATIENT
  Age: 81 Year
  Sex: Female

DRUGS (1)
  1. PROLIA [Suspect]
     Active Substance: DENOSUMAB
     Indication: Osteoporosis
     Dosage: UNK, Q6MO (TWO INJECTION PER YEAR)
     Route: 065
     Dates: start: 201601

REACTIONS (7)
  - Cataract [Unknown]
  - Varicose vein [Unknown]
  - Dizziness postural [Unknown]
  - Thyroid disorder [Unknown]
  - Erythema [Unknown]
  - Alopecia [Unknown]
  - Sciatica [Unknown]

NARRATIVE: CASE EVENT DATE: 20250101
